FAERS Safety Report 12921035 (Version 1)
Quarter: 2016Q4

REPORT INFORMATION
  Report Type: Spontaneous
  Country: US (occurrence: US)
  Receive Date: 20161105
  Receipt Date: 20161105
  Transmission Date: 20170207
  Serious: Yes (Hospitalization)
  Sender: FDA-Public Use
  Company Number: None

PATIENT
  Age: 69 Year
  Sex: Female
  Weight: 81.7 kg

DRUGS (3)
  1. CYCLOPHOSPHAMIDE. [Suspect]
     Active Substance: CYCLOPHOSPHAMIDE
     Dates: end: 20160712
  2. TAXOL [Suspect]
     Active Substance: PACLITAXEL
     Dates: end: 20160825
  3. DOXORUBICIN HYDROCHLORIDE. [Suspect]
     Active Substance: DOXORUBICIN HYDROCHLORIDE
     Dates: end: 20160712

REACTIONS (7)
  - Hypokalaemia [None]
  - Ejection fraction decreased [None]
  - Lung infection [None]
  - Pleural effusion [None]
  - Cardiomyopathy [None]
  - Clostridium difficile colitis [None]
  - Treatment noncompliance [None]

NARRATIVE: CASE EVENT DATE: 20161008
